FAERS Safety Report 9412272 (Version 1)
Quarter: 2013Q3

REPORT INFORMATION
  Report Type: Spontaneous
  Country: US (occurrence: None)
  Receive Date: 20130719
  Receipt Date: 20130719
  Transmission Date: 20140515
  Serious: Yes (Hospitalization)
  Sender: FDA-Public Use
  Company Number: None

PATIENT
  Sex: 0

DRUGS (1)
  1. BUTRANS [Suspect]
     Indication: PAIN
     Dosage: 87 DAYS
     Route: 062
     Dates: start: 20130614, end: 20130621

REACTIONS (5)
  - Fatigue [None]
  - Unresponsive to stimuli [None]
  - Respiratory disorder [None]
  - Renal failure acute [None]
  - Liver function test abnormal [None]
